FAERS Safety Report 7135073-9 (Version None)
Quarter: 2010Q4

REPORT INFORMATION
  Report Type: 
  Country: None (occurrence: None)
  Receive Date: 20101203
  Receipt Date: 20100928
  Transmission Date: 20110411
  Serious: Yes (Hospitalization)
  Sender: FDA-Public Use
  Company Number: US-BRISTOL-MYERS SQUIBB COMPANY-15311442

PATIENT
  Age: 61 Year
  Sex: Male

DRUGS (2)
  1. VIDEX [Suspect]
  2. KALETRA [Concomitant]

REACTIONS (2)
  - ASCITES [None]
  - HEPATIC FAILURE [None]
